FAERS Safety Report 8251515-X (Version None)
Quarter: 2012Q2

REPORT INFORMATION
  Report Type: 
  Country: None (occurrence: None)
  Receive Date: 20120402
  Receipt Date: 20120327
  Transmission Date: 20120825
  Serious: Yes (Hospitalization, Other)
  Sender: FDA-Public Use
  Company Number: JP-VERTEX PHARMACEUTICALS INC.-AE-2012-003955

PATIENT
  Age: 69 Year
  Sex: Female

DRUGS (12)
  1. NEO-MERCAZOLE TAB [Concomitant]
     Route: 048
  2. REBETOL [Concomitant]
     Indication: HEPATITIS C
     Route: 048
     Dates: start: 20120124, end: 20120202
  3. LANIRAPID [Concomitant]
     Route: 048
     Dates: end: 20120131
  4. TELAVIC (TELAPREVIR) [Suspect]
     Indication: HEPATITIS C
     Route: 048
     Dates: start: 20120124, end: 20120319
  5. ZOLPIDEM [Concomitant]
     Route: 048
  6. WARFARIN SODIUM [Concomitant]
     Route: 048
     Dates: end: 20120206
  7. LOXOPROFEN [Concomitant]
     Route: 048
     Dates: start: 20120123, end: 20120220
  8. REBETOL [Concomitant]
     Route: 048
     Dates: start: 20120203, end: 20120214
  9. REBETOL [Concomitant]
     Route: 048
     Dates: start: 20120215, end: 20120319
  10. VERAPAMIL HCL [Concomitant]
     Route: 048
  11. MUCOSTA [Concomitant]
     Route: 048
     Dates: start: 20120123, end: 20120220
  12. PEG-INTRON [Concomitant]
     Indication: HEPATITIS C
     Route: 058
     Dates: start: 20120124, end: 20120319

REACTIONS (2)
  - HAEMOGLOBIN DECREASED [None]
  - CARDIAC FAILURE [None]
